FAERS Safety Report 6441078-3 (Version None)
Quarter: 2009Q4

REPORT INFORMATION
  Report Type: 
  Country: None (occurrence: None)
  Receive Date: 20091102
  Receipt Date: 20071010
  Transmission Date: 20100525
  Serious: Yes (Other)
  Sender: FDA-Public Use
  Company Number: CART-10498

PATIENT
  Age: 45 Year
  Sex: Female

DRUGS (2)
  1. CARTICEL [Suspect]
     Indication: ARTHROPATHY
     Dosage: 1 NA, ONCE, OTHER
     Route: 050
     Dates: start: 20070724, end: 20070724
  2. PEGASUS MEMBRANE () [Suspect]
     Indication: ARTHROPATHY
     Dosage: 1 NA, ONCE
     Dates: start: 20070724, end: 20070724

REACTIONS (1)
  - SYNOVITIS [None]
